FAERS Safety Report 19716833 (Version 1)
Quarter: 2021Q3

REPORT INFORMATION
  Report Type: Spontaneous
  Country: US (occurrence: US)
  Receive Date: 20210819
  Receipt Date: 20210819
  Transmission Date: 20211014
  Serious: Yes (Other)
  Sender: FDA-Public Use
  Company Number: US-TELIGENT, INC-20210800078

PATIENT
  Sex: Male

DRUGS (2)
  1. CHANTIX [Concomitant]
     Active Substance: VARENICLINE TARTRATE
  2. ZANTAC [Suspect]
     Active Substance: RANITIDINE HYDROCHLORIDE
     Indication: PRODUCT USED FOR UNKNOWN INDICATION
     Dosage: UNK, UNKNOWN
     Route: 065

REACTIONS (2)
  - Product contamination [Unknown]
  - Neoplasm malignant [Unknown]
